FAERS Safety Report 7133703-9 (Version None)
Quarter: 2010Q4

REPORT INFORMATION
  Report Type: 
  Country: None (occurrence: None)
  Receive Date: 20101202
  Receipt Date: 20101124
  Transmission Date: 20110411
  Serious: Yes (Other)
  Sender: FDA-Public Use
  Company Number: IT-AMGEN-ITASP2010006127

PATIENT

DRUGS (2)
  1. NPLATE [Suspect]
     Indication: IDIOPATHIC THROMBOCYTOPENIC PURPURA
     Dosage: 660 A?G, QWK
     Route: 058
     Dates: start: 20100427, end: 20101110
  2. TRANEX [Concomitant]
     Dosage: 500 MG, TID
     Route: 048
     Dates: start: 20101106

REACTIONS (1)
  - HAEMOLYTIC ANAEMIA [None]
